FAERS Safety Report 7920234-9 (Version None)
Quarter: 2011Q4

REPORT INFORMATION
  Report Type: 
  Country: None (occurrence: None)
  Receive Date: 20111117
  Receipt Date: 20111111
  Transmission Date: 20120403
  Serious: Yes (Other)
  Sender: FDA-Public Use
  Company Number: CN-PFIZER INC-2011277633

PATIENT

DRUGS (1)
  1. XALATAN [Suspect]

REACTIONS (1)
  - CORNEAL INFILTRATES [None]
